FAERS Safety Report 18502975 (Version 3)
Quarter: 2021Q1

REPORT INFORMATION
  Report Type: Report from Study
  Country: FR (occurrence: FR)
  Receive Date: 20201113
  Receipt Date: 20210105
  Transmission Date: 20210419
  Serious: Yes (Hospitalization, Other)
  Sender: FDA-Public Use
  Company Number: FR-EXELIXIS-XL18420034840

PATIENT

DRUGS (6)
  1. LOPERAMIDE [Concomitant]
     Active Substance: LOPERAMIDE
     Indication: DIARRHOEA
  2. METOCLOPRAMIDE. [Concomitant]
     Active Substance: METOCLOPRAMIDE
     Indication: NAUSEA
  3. SOTALOL. [Concomitant]
     Active Substance: SOTALOL
  4. LERCAPRESS [ENALAPRIL MALEATE;LERCANIDIPINE HYDROCHLORIDE] [Suspect]
     Active Substance: ENALAPRIL MALEATE\LERCANIDIPINE HYDROCHLORIDE
     Indication: HYPERTENSION
  5. XL184 [Suspect]
     Active Substance: CABOZANTINIB
     Indication: CERVIX CARCINOMA
     Dosage: 60 MG, QD
     Route: 048
     Dates: start: 20200903, end: 20201001
  6. METOCLOPRAMIDE. [Concomitant]
     Active Substance: METOCLOPRAMIDE
     Indication: VOMITING

REACTIONS (3)
  - Uterine fistula [Not Recovered/Not Resolved]
  - Acute kidney injury [Recovered/Resolved]
  - Vaginal fistula [Not Recovered/Not Resolved]

NARRATIVE: CASE EVENT DATE: 20201020
